FAERS Safety Report 4319542-2 (Version None)
Quarter: 2004Q1

REPORT INFORMATION
  Report Type: 
  Country: None (occurrence: None)
  Receive Date: 20040316
  Receipt Date: 20040301
  Transmission Date: 20041129
  Serious: Yes (Death, Other)
  Sender: FDA-Public Use
  Company Number: US_031299506

PATIENT
  Sex: Male

DRUGS (1)
  1. ZYPREXA [Suspect]
     Indication: ATTENTION DEFICIT/HYPERACTIVITY DISORDER
     Dates: start: 19990101

REACTIONS (7)
  - DEHYDRATION [None]
  - DIABETIC HYPEROSMOLAR COMA [None]
  - DRUG TOXICITY [None]
  - ELECTROLYTE IMBALANCE [None]
  - GLUCOSE URINE PRESENT [None]
  - HYPERGLYCAEMIA [None]
  - INJURY [None]
